FAERS Safety Report 6287014-4 (Version None)
Quarter: 2009Q3

REPORT INFORMATION
  Report Type: 
  Country: None (occurrence: None)
  Receive Date: 20090727
  Receipt Date: 20090727
  Transmission Date: 20100115
  Serious: Yes (Other)
  Sender: FDA-Public Use
  Company Number: None

PATIENT
  Sex: Male
  Weight: 72.5755 kg

DRUGS (1)
  1. FINASTERIDE [Suspect]
     Indication: PROSTATOMEGALY
     Dosage: 5 MG ONCE DAILY 5+ YEARS

REACTIONS (1)
  - BREAST PAIN [None]
